FAERS Safety Report 4720859-8 (Version None)
Quarter: 2005Q3

REPORT INFORMATION
  Report Type: 
  Country: None (occurrence: None)
  Receive Date: 20050720
  Receipt Date: 20050711
  Transmission Date: 20060218
  Serious: Yes (Death, Other)
  Sender: FDA-Public Use
  Company Number: 2005-07-0416

PATIENT
  Age: 17 Year
  Sex: Male

DRUGS (2)
  1. INTRON A [Suspect]
     Indication: ACUTE LYMPHOCYTIC LEUKAEMIA
     Dosage: 8 MIU SUBCUTANEOUS
     Route: 058
     Dates: end: 20050323
  2. VELCADE [Suspect]
     Indication: ACUTE LYMPHOCYTIC LEUKAEMIA
     Dosage: 2.9 MG/DOSE INTRAVENOUS
     Route: 042
     Dates: start: 20050324, end: 20050404

REACTIONS (13)
  - DEPRESSED LEVEL OF CONSCIOUSNESS [None]
  - DYSPNOEA [None]
  - FATIGUE [None]
  - GENERAL PHYSICAL HEALTH DETERIORATION [None]
  - INFECTION [None]
  - MUSCULAR WEAKNESS [None]
  - OXYGEN SATURATION DECREASED [None]
  - PAIN [None]
  - PULMONARY OEDEMA [None]
  - RESPIRATORY FAILURE [None]
  - THERAPY NON-RESPONDER [None]
  - WEIGHT INCREASED [None]
  - WHEEZING [None]
